FAERS Safety Report 7171089-4 (Version None)
Quarter: 2010Q4

REPORT INFORMATION
  Report Type: 
  Country: None (occurrence: None)
  Receive Date: 20101207
  Receipt Date: 20101122
  Transmission Date: 20110411
  Serious: Yes (Hospitalization)
  Sender: FDA-Public Use
  Company Number: DSM-2010-01752

PATIENT
  Age: 85 Year
  Sex: Female

DRUGS (9)
  1. OLMESARTAN MEDOXOMIL AND HYDROCHLOROTHIZIDE [Suspect]
     Indication: PRODUCT USED FOR UNKNOWN INDICATION
     Dosage: 20/12.5 MG, ORAL
     Route: 048
     Dates: end: 20100708
  2. SELOKEN (METOPROLOL TARTRATE) (50 MILLIGRAM) (METOPROLOL TARTRATE) [Suspect]
     Indication: HYPERTENSION
     Dosage: 100 MG (50 MG, 2 IN 1 D), ORAL
     Route: 048
  3. COVERSYL  (PERIDOPRIL) (PERINDOPRIL) [Suspect]
     Indication: HYPERTENSION
     Dosage: 10 MG, ORAL
     Route: 048
  4. FLUDEX (INDAPAMIDE( (INDAPAMIDE) [Concomitant]
  5. KARDEGIC (ACETYLSALICYLATE LYSINE) [Concomitant]
  6. CALTRATE + VITAMIN D (COLECALCIFEROL, CALCIUM CARBONATE) [Concomitant]
  7. OMEPRAZOLE [Concomitant]
  8. CARBOSYMAG (MAGNESIUM OXIDE, SIMETICONE, CHARCOAL, ACTIVATED) [Concomitant]
  9. FOSAMAX [Concomitant]

REACTIONS (5)
  - BALANCE DISORDER [None]
  - DISEASE RECURRENCE [None]
  - DRUG INTERACTION [None]
  - FALL [None]
  - ORTHOSTATIC HYPOTENSION [None]
